FAERS Safety Report 20775809 (Version 1)
Quarter: 2022Q2

REPORT INFORMATION
  Report Type: Spontaneous
  Country: US (occurrence: US)
  Receive Date: 20220502
  Receipt Date: 20220502
  Transmission Date: 20220721
  Serious: No
  Sender: FDA-Public Use
  Company Number: US-PFIZER INC-202101075465

PATIENT
  Age: 30 Year
  Sex: Male
  Weight: 111.13 kg

DRUGS (1)
  1. ZOLOFT [Suspect]
     Active Substance: SERTRALINE HYDROCHLORIDE
     Dosage: UNK

REACTIONS (10)
  - Irritability [Unknown]
  - Grief reaction [Unknown]
  - Thinking abnormal [Unknown]
  - Libido decreased [Unknown]
  - Depression [Unknown]
  - Life expectancy shortened [Unknown]
  - Aggression [Unknown]
  - Decreased appetite [Unknown]
  - Feeling abnormal [Unknown]
  - Fear [Unknown]
